FAERS Safety Report 7558012-5 (Version None)
Quarter: 2011Q2

REPORT INFORMATION
  Report Type: 
  Country: None (occurrence: None)
  Receive Date: 20110620
  Receipt Date: 20110606
  Transmission Date: 20111010
  Serious: Yes (Death, Hospitalization)
  Sender: FDA-Public Use
  Company Number: FR-GENENTECH-300148

PATIENT
  Age: 39 Year
  Sex: Female

DRUGS (16)
  1. PREDNISONE [Concomitant]
     Dosage: 20 MG, UNK
     Dates: start: 20020601
  2. MABTHERA [Suspect]
     Indication: POLYMYOSITIS
     Dosage: 1 G, DAYS 2+15
     Route: 042
     Dates: start: 20090101
  3. MABTHERA [Suspect]
     Dosage: 1 UNK, UNK
     Route: 042
     Dates: start: 20060301
  4. MABTHERA [Suspect]
     Dosage: 1 UNK, UNK
     Route: 042
     Dates: start: 20050501
  5. PREDNISONE [Concomitant]
     Dosage: 10 MG, UNK
     Dates: start: 20030701
  6. PREDNISONE [Concomitant]
     Dosage: 30 MG, UNK
     Dates: start: 20011201
  7. PREDNISONE [Concomitant]
     Dosage: 60 MG, UNK
     Dates: start: 20011001
  8. PREDNISONE [Concomitant]
     Dosage: 8 MG, UNK
     Dates: start: 20060301, end: 20070501
  9. AZATHIOPRINE SODIUM [Suspect]
     Indication: POLYMYOSITIS
     Dosage: 30900 MG, UNK
     Route: 065
     Dates: start: 20021101, end: 20050201
  10. MABTHERA [Suspect]
     Dosage: UNK
     Route: 042
     Dates: start: 20070501
  11. MABTHERA [Suspect]
     Dosage: 1 G, Q6M
     Route: 042
  12. MYCOPHENOLATE MEFETIL [Suspect]
     Indication: POLYMYOSITIS
     Dosage: 27 G, UNK
     Route: 065
  13. METHOTREXATE [Suspect]
     Indication: POLYMYOSITIS
     Dosage: 1350 MG, UNK
     Route: 065
     Dates: start: 20011201, end: 20021101
  14. CYCLOSPORINE [Suspect]
     Indication: POLYMYOSITIS
     Dosage: 4500 MG, UNK
     Route: 065
     Dates: start: 20060801
  15. PREDNISONE [Concomitant]
     Indication: PRODUCT USED FOR UNKNOWN INDICATION
     Dosage: 10 MG, UNK
     Dates: start: 20070901
  16. PREDNISONE [Concomitant]
     Dosage: 6 MG, UNK
     Dates: start: 20070501

REACTIONS (3)
  - DRUG INEFFECTIVE [None]
  - PROGRESSIVE MULTIFOCAL LEUKOENCEPHALOPATHY [None]
  - PNEUMONIA ASPIRATION [None]
